FAERS Safety Report 16067982 (Version 1)
Quarter: 2019Q1

REPORT INFORMATION
  Report Type: Spontaneous
  Country: NL (occurrence: NL)
  Receive Date: 20190313
  Receipt Date: 20190313
  Transmission Date: 20190418
  Serious: Yes (Death, Other)
  Sender: FDA-Public Use
  Company Number: NL-PFIZER INC-2019108686

PATIENT
  Age: 78 Year
  Sex: Male

DRUGS (3)
  1. CARBOPLATIN. [Suspect]
     Active Substance: CARBOPLATIN
     Dosage: UNK
  2. PEMTREX [Suspect]
     Active Substance: PEMETREXED DISODIUM
     Dosage: UNK
  3. KEYTRUDA [Suspect]
     Active Substance: PEMBROLIZUMAB
     Indication: LUNG NEOPLASM MALIGNANT
     Dosage: 20 (UNITS NOT REPORTED), EVERY 3 WEEKS
     Dates: start: 20190111, end: 20190111

REACTIONS (2)
  - Sepsis [Fatal]
  - Infection [Fatal]

NARRATIVE: CASE EVENT DATE: 201901
